FAERS Safety Report 16877687 (Version 1)
Quarter: 2019Q4

REPORT INFORMATION
  Report Type: Spontaneous
  Country: US (occurrence: US)
  Receive Date: 20191002
  Receipt Date: 20191002
  Transmission Date: 20200122
  Serious: Yes (Death, Hospitalization)
  Sender: FDA-Public Use
  Company Number: US-STEMLINE THERAPEUTICS, INC.-2019ST000076

PATIENT
  Age: 77 Year
  Sex: Male

DRUGS (1)
  1. ELZONRIS [Suspect]
     Active Substance: TAGRAXOFUSP-ERZS
     Indication: PRODUCT USED FOR UNKNOWN INDICATION
     Route: 042
     Dates: start: 20190905, end: 20190911

REACTIONS (14)
  - Hypoxia [Unknown]
  - Haematocrit decreased [Unknown]
  - Liver function test increased [Unknown]
  - Mucosal inflammation [Unknown]
  - Blood creatinine increased [Unknown]
  - Blood lactic acid increased [Unknown]
  - Blood pressure fluctuation [Unknown]
  - Haemoglobin decreased [Unknown]
  - Pyrexia [Unknown]
  - Haematochezia [Unknown]
  - Cardiac arrest [Fatal]
  - Confusional state [Unknown]
  - Syncope [Unknown]
  - Capillary leak syndrome [Unknown]

NARRATIVE: CASE EVENT DATE: 201909
